FAERS Safety Report 11144590 (Version 1)
Quarter: 2015Q2

REPORT INFORMATION
  Report Type: Spontaneous
  Country: US (occurrence: None)
  Receive Date: 20150526
  Receipt Date: 20150526
  Transmission Date: 20150821
  Serious: Yes (Other)
  Sender: FDA-Public Use
  Company Number: PI-AE15-000956

PATIENT
  Age: 37 Year
  Sex: Female

DRUGS (1)
  1. MONISTAT 3 [Suspect]
     Active Substance: MICONAZOLE NITRATE
     Indication: FUNGAL INFECTION
     Route: 067
     Dates: start: 20150306

REACTIONS (9)
  - Pharyngeal oedema [None]
  - Dysstasia [None]
  - Hypersensitivity [None]
  - Vulvovaginal swelling [None]
  - Abasia [None]
  - Throat irritation [None]
  - Vulvovaginal burning sensation [None]
  - Thermal burn [None]
  - Dysphagia [None]

NARRATIVE: CASE EVENT DATE: 20150306
